FAERS Safety Report 25853871 (Version 2)
Quarter: 2025Q4

REPORT INFORMATION
  Report Type: Report from Study
  Country: CA (occurrence: CA)
  Receive Date: 20250926
  Receipt Date: 20251229
  Transmission Date: 20260118
  Serious: Yes (Hospitalization)
  Sender: ABBVIE
  Company Number: CA-ABBVIE-6475639

PATIENT
  Sex: Female

DRUGS (2)
  1. RINVOQ [Suspect]
     Active Substance: UPADACITINIB
     Indication: Crohn^s disease
     Route: 048
  2. AZITHROMYCIN [Concomitant]
     Active Substance: AZITHROMYCIN
     Indication: Product used for unknown indication

REACTIONS (6)
  - Salmonellosis [Recovered/Resolved]
  - Frequent bowel movements [Recovering/Resolving]
  - Gastroenteritis salmonella [Recovered/Resolved]
  - Gastrointestinal wall thickening [Unknown]
  - Rectal haemorrhage [Not Recovered/Not Resolved]
  - Decreased appetite [Recovered/Resolved]
